FAERS Safety Report 21003626 (Version 1)
Quarter: 2022Q2

REPORT INFORMATION
  Report Type: Spontaneous
  Country: US (occurrence: US)
  Receive Date: 20220624
  Receipt Date: 20220624
  Transmission Date: 20220721
  Serious: No
  Sender: FDA-Public Use
  Company Number: US-PFIZER INC-PV202200008008

PATIENT
  Age: 64 Year
  Sex: Female

DRUGS (1)
  1. XELJANZ [Suspect]
     Active Substance: TOFACITINIB CITRATE
     Dosage: 5 MG, ALTERNATE DAY (I TAKE 5MG ONCE A DAY EVERY OTHER DAY)

REACTIONS (4)
  - Off label use [Unknown]
  - COVID-19 [Unknown]
  - Pain in extremity [Unknown]
  - Dyskinesia [Unknown]
